FAERS Safety Report 9175048 (Version 1)
Quarter: 2013Q1

REPORT INFORMATION
  Report Type: Spontaneous
  Country: CA (occurrence: None)
  Receive Date: 20130318
  Receipt Date: 20130318
  Transmission Date: 20140127
  Serious: Yes (Other)
  Sender: FDA-Public Use
  Company Number: 2013034552

PATIENT
  Age: 12 Year
  Sex: Female

DRUGS (1)
  1. DESMOPRESSIN ACETATE [Suspect]
     Indication: HYPOPITUITARISM

REACTIONS (3)
  - Abdominal pain [None]
  - Dyspnoea [None]
  - Rash [None]
